FAERS Safety Report 18739486 (Version 1)
Quarter: 2021Q1

REPORT INFORMATION
  Report Type: Spontaneous
  Country: JP (occurrence: JP)
  Receive Date: 20210114
  Receipt Date: 20210114
  Transmission Date: 20210419
  Serious: Yes (Hospitalization, Other)
  Sender: FDA-Public Use
  Company Number: JP-ASTELLAS-2021JP000295

PATIENT
  Age: 78 Year
  Sex: Female

DRUGS (2)
  1. PROGRAF [Suspect]
     Active Substance: TACROLIMUS
     Indication: MYASTHENIA GRAVIS
     Dosage: 0.5 MG, ONCE DAILY
     Route: 048
  2. PROGRAF [Suspect]
     Active Substance: TACROLIMUS
     Indication: MYASTHENIA GRAVIS
     Dosage: 2 MG/DAY, UNKNOWN FREQ.
     Route: 048

REACTIONS (3)
  - Communication disorder [Unknown]
  - Immobile [Unknown]
  - Respiratory disorder [Unknown]
